FAERS Safety Report 6060050-9 (Version None)
Quarter: 2009Q1

REPORT INFORMATION
  Report Type: 
  Country: None (occurrence: None)
  Receive Date: 20090128
  Receipt Date: 20090121
  Transmission Date: 20090719
  Serious: Yes (Hospitalization)
  Sender: FDA-Public Use
  Company Number: 040143

PATIENT
  Age: 16 Month
  Sex: Female
  Weight: 6.7 kg

DRUGS (7)
  1. METHOTREXATE [Suspect]
  2. LESTAURTINIB() [Suspect]
     Indication: ACUTE LYMPHOCYTIC LEUKAEMIA
     Dosage: ORAL
     Route: 048
     Dates: start: 20081231
  3. DEXAMETHASONE TAB [Suspect]
  4. MERCAPTOPURINE [Suspect]
  5. VINCRISTINE [Suspect]
  6. CYTARABINE [Concomitant]
  7. HYDROCORTISONE (HYDROCORTISONE) [Concomitant]

REACTIONS (2)
  - COLITIS [None]
  - VOMITING [None]
